FAERS Safety Report 9265226 (Version 1)
Quarter: 2013Q2

REPORT INFORMATION
  Report Type: Spontaneous
  Country: US (occurrence: US)
  Receive Date: 20130501
  Receipt Date: 20130501
  Transmission Date: 20140414
  Serious: Yes (Hospitalization)
  Sender: FDA-Public Use
  Company Number: US-VERTEX PHARMACEUTICALS INC-2013-005570

PATIENT
  Age: 54 Year
  Sex: Female

DRUGS (15)
  1. INCIVEK [Suspect]
     Indication: CHRONIC HEPATITIS C
     Dosage: 2250 MG, QD
     Route: 048
     Dates: start: 20120601, end: 20120823
  2. PEGINTERFERON ALFA-2A [Suspect]
     Indication: CHRONIC HEPATITIS C
     Dosage: 180 ?G, QW
     Route: 058
     Dates: start: 20120601, end: 20121109
  3. RIBAVIRIN [Suspect]
     Indication: CHRONIC HEPATITIS C
     Dosage: 600 MG, QD
     Route: 048
     Dates: start: 20120601, end: 20120826
  4. IBUPROFEN [Concomitant]
     Dosage: UNK
     Dates: start: 20120601
  5. LORTAB [Concomitant]
     Dosage: UNK
     Dates: start: 20120603
  6. ZOFRAN [Concomitant]
     Dosage: UNK
     Dates: start: 20120603
  7. ASPIRIN [Concomitant]
  8. NITROGLYCERIN [Concomitant]
  9. LOVENOX [Concomitant]
  10. XANAX [Concomitant]
  11. REMERON [Concomitant]
  12. CALCIUM [Concomitant]
     Dosage: UNK
     Dates: start: 2003
  13. VITAMIN B12 [Concomitant]
     Dosage: UNK
     Dates: start: 2012
  14. MULTIVITAMIN [Concomitant]
     Dosage: UNK
     Dates: start: 2010
  15. MIRTAZEPINE [Concomitant]

REACTIONS (1)
  - Anaemia [Recovered/Resolved]
